FAERS Safety Report 9616022 (Version 2)
Quarter: 2013Q4

REPORT INFORMATION
  Report Type: Spontaneous
  Country: SE (occurrence: SE)
  Receive Date: 20131011
  Receipt Date: 20131023
  Transmission Date: 20140711
  Serious: Yes (Hospitalization, Other)
  Sender: FDA-Public Use
  Company Number: SE-CELGENEUS-150-21660-13100814

PATIENT
  Age: 31 Year
  Sex: Female

DRUGS (2)
  1. ABRAXANE [Suspect]
     Indication: CERVIX CARCINOMA
     Route: 041
     Dates: start: 20130318, end: 20130502
  2. CARBOPLATIN [Suspect]
     Indication: CERVIX CARCINOMA
     Route: 065
     Dates: start: 20130318, end: 20130502

REACTIONS (3)
  - Embolism arterial [Recovered/Resolved with Sequelae]
  - Cerebral infarction [Recovered/Resolved with Sequelae]
  - Pulmonary embolism [Recovered/Resolved with Sequelae]
